FAERS Safety Report 12373095 (Version 1)
Quarter: 2016Q2

REPORT INFORMATION
  Report Type: Report from Study
  Country: US (occurrence: US)
  Receive Date: 20160516
  Receipt Date: 20160516
  Transmission Date: 20160815
  Serious: Yes (Hospitalization)
  Sender: FDA-Public Use
  Company Number: US-MALLINCKRODT-T201601006

PATIENT
  Age: 52 Year
  Sex: Male
  Weight: 95 kg

DRUGS (13)
  1. SOMA [Concomitant]
     Active Substance: CARISOPRODOL
     Dosage: 350MG; Q 4-6 HR, PRN
  2. VITAMIN B12 [Concomitant]
     Active Substance: CYANOCOBALAMIN
     Dosage: 1,000MCG INJECTION ONCE WEEKLY
  3. REPOSITORY CORTICOTROPIN INJECTION [Suspect]
     Active Substance: CORTICOTROPIN
     Indication: MULTIPLE SCLEROSIS
     Dosage: 80 UNITS (ONE ML), ONCE DAILY FOR 5 DAYS
     Route: 065
     Dates: start: 201601, end: 201601
  4. LONOX [Concomitant]
     Active Substance: ATROPINE SULFATE\DIPHENOXYLATE HYDROCHLORIDE
     Dosage: PRN
  5. OMEPRAZOLE. [Concomitant]
     Active Substance: OMEPRAZOLE
     Dosage: 20MG QD
  6. VITAMINS [Concomitant]
     Active Substance: VITAMINS
  7. MIDRIN [Concomitant]
     Active Substance: ACETAMINOPHEN\DICHLORALPHENAZONE\ISOMETHEPTENE
     Dosage: PRN
  8. OXYCODONE [Concomitant]
     Active Substance: OXYCODONE
     Dosage: 5MG; Q6HR PRN
  9. OXYCONTIN [Concomitant]
     Active Substance: OXYCODONE HYDROCHLORIDE
     Dosage: 10MG; Q 4-6 HR PRN
  10. VIAGRA [Concomitant]
     Active Substance: SILDENAFIL CITRATE
     Dosage: 100MG; PRN
  11. ADVIL [Concomitant]
     Active Substance: IBUPROFEN
     Dosage: 800-1600 MG/DAY
  12. IMODIUM [Concomitant]
     Active Substance: LOPERAMIDE HYDROCHLORIDE
     Dosage: PRN
  13. ASA [Concomitant]
     Active Substance: ASPIRIN
     Dosage: 81MG QD

REACTIONS (3)
  - Gastrointestinal infection [Not Recovered/Not Resolved]
  - Multiple sclerosis relapse [Unknown]
  - Dehydration [Not Recovered/Not Resolved]

NARRATIVE: CASE EVENT DATE: 201603
